FAERS Safety Report 10795784 (Version 1)
Quarter: 2015Q1

REPORT INFORMATION
  Report Type: Spontaneous
  Country: HR (occurrence: HR)
  Receive Date: 20150215
  Receipt Date: 20150215
  Transmission Date: 20150721
  Serious: Yes (Other)
  Sender: FDA-Public Use
  Company Number: PHHY2015HR014275

PATIENT
  Age: 35 Year
  Sex: Male

DRUGS (1)
  1. XORIMAX [Suspect]
     Active Substance: CEFUROXIME AXETIL
     Indication: OROPHARYNGEAL PAIN
     Dosage: 500 MG, BID
     Route: 048
     Dates: start: 201501, end: 201501

REACTIONS (3)
  - Drug hypersensitivity [Recovered/Resolved]
  - Pruritus [Recovered/Resolved]
  - Generalised oedema [Recovered/Resolved]

NARRATIVE: CASE EVENT DATE: 201501
